FAERS Safety Report 6085665-3 (Version None)
Quarter: 2009Q1

REPORT INFORMATION
  Report Type: 
  Country: None (occurrence: None)
  Receive Date: 20090217
  Receipt Date: 20071226
  Transmission Date: 20090719
  Serious: Yes (Other)
  Sender: FDA-Public Use
  Company Number: MC200700741

PATIENT
  Age: 49 Year
  Sex: Female
  Weight: 76.5 kg

DRUGS (7)
  1. ANGIOMAX [Suspect]
     Indication: PERCUTANEOUS CORONARY INTERVENTION
     Dosage: 11.3 ML, SINGLE, IV BOLUS; 26 ML, HR INTRAVENOUS
     Route: 040
     Dates: start: 20071210, end: 20071210
  2. ANGIOMAX [Suspect]
     Indication: PERCUTANEOUS CORONARY INTERVENTION
     Dosage: 11.3 ML, SINGLE, IV BOLUS; 26 ML, HR INTRAVENOUS
     Route: 040
     Dates: start: 20071210, end: 20071210
  3. . [Concomitant]
  4. PLAVIX /0120701/ (CLOPIDOGREL) [Concomitant]
  5. ASPIRIN [Concomitant]
  6. HOMEOPATIC PREPARATION [Concomitant]
  7. ANTI-DIABETICS [Concomitant]

REACTIONS (1)
  - STENT OCCLUSION [None]
